FAERS Safety Report 18331329 (Version 2)
Quarter: 2022Q1

REPORT INFORMATION
  Report Type: Spontaneous
  Country: US (occurrence: None)
  Receive Date: 20200930
  Receipt Date: 20220302
  Transmission Date: 20220423
  Serious: Yes (Other)
  Sender: FDA-Public Use
  Company Number: US-EISAI MEDICAL RESEARCH-EC-2020-081125

PATIENT
  Age: 48 Year
  Sex: Female
  Weight: 76.4 kg

DRUGS (1)
  1. BELVIQ [Suspect]
     Active Substance: LORCASERIN HYDROCHLORIDE
     Indication: Weight decreased
     Route: 048
     Dates: start: 20191018, end: 20200109

REACTIONS (1)
  - Triple negative breast cancer [Unknown]

NARRATIVE: CASE EVENT DATE: 20191120
